FAERS Safety Report 12765606 (Version 1)
Quarter: 2016Q3

REPORT INFORMATION
  Report Type: Other
  Country: US (occurrence: US)
  Receive Date: 20160921
  Receipt Date: 20160921
  Transmission Date: 20161109
  Serious: Yes (Other)
  Sender: FDA-Public Use
  Company Number: US-LUPIN PHARMACEUTICALS INC.-2016-04203

PATIENT
  Age: 88 Year
  Sex: Male
  Weight: 80.4 kg

DRUGS (15)
  1. FINASTERIDE. [Concomitant]
     Active Substance: FINASTERIDE
     Indication: PRODUCT USED FOR UNKNOWN INDICATION
     Route: 065
  2. NILOTINIB [Interacting]
     Active Substance: NILOTINIB
     Route: 065
  3. BOSUTINIB [Interacting]
     Active Substance: BOSUTINIB
     Indication: CHRONIC MYELOID LEUKAEMIA
     Route: 065
     Dates: start: 201312
  4. IMATINIB [Interacting]
     Active Substance: IMATINIB
     Indication: CHRONIC MYELOID LEUKAEMIA
     Route: 065
  5. IMATINIB [Interacting]
     Active Substance: IMATINIB
     Route: 065
     Dates: start: 201111
  6. DASATINIB [Interacting]
     Active Substance: DASATINIB
     Indication: CHRONIC MYELOID LEUKAEMIA
     Route: 065
     Dates: start: 201103
  7. IMATINIB [Interacting]
     Active Substance: IMATINIB
     Route: 065
     Dates: end: 201308
  8. TAMSULOSIN [Concomitant]
     Active Substance: TAMSULOSIN
     Indication: PRODUCT USED FOR UNKNOWN INDICATION
     Route: 065
  9. IMATINIB [Interacting]
     Active Substance: IMATINIB
     Route: 065
     Dates: start: 201308
  10. DIAZEPAM. [Concomitant]
     Active Substance: DIAZEPAM
     Indication: PRODUCT USED FOR UNKNOWN INDICATION
     Route: 065
  11. RABEPRAZOLE [Suspect]
     Active Substance: RABEPRAZOLE
     Indication: PRODUCT USED FOR UNKNOWN INDICATION
     Route: 065
  12. NILOTINIB [Interacting]
     Active Substance: NILOTINIB
     Indication: CHRONIC MYELOID LEUKAEMIA
     Route: 065
     Dates: start: 201109
  13. BOSUTINIB [Interacting]
     Active Substance: BOSUTINIB
     Route: 065
     Dates: end: 201401
  14. BOSUTINIB [Interacting]
     Active Substance: BOSUTINIB
     Route: 065
     Dates: start: 201402, end: 201405
  15. BOSUTINIB [Interacting]
     Active Substance: BOSUTINIB
     Route: 065
     Dates: start: 201405

REACTIONS (2)
  - Drug interaction [Unknown]
  - Inappropriate antidiuretic hormone secretion [Unknown]
